FAERS Safety Report 6835290-9 (Version None)
Quarter: 2010Q3

REPORT INFORMATION
  Report Type: 
  Country: None (occurrence: None)
  Receive Date: 20100713
  Receipt Date: 20100703
  Transmission Date: 20110219
  Serious: Yes (Other)
  Sender: FDA-Public Use
  Company Number: IT-JNJFOC-20100702365

PATIENT
  Age: 43 Year
  Sex: Male

DRUGS (3)
  1. RISPERIDONE [Suspect]
     Indication: MAJOR DEPRESSION
     Route: 065
  2. CITALOPRAM HYDROBROMIDE [Suspect]
     Indication: MAJOR DEPRESSION
     Route: 065
  3. PAROXETINE [Suspect]
     Indication: MAJOR DEPRESSION
     Route: 065

REACTIONS (2)
  - DEPRESSION [None]
  - DRUG INEFFECTIVE [None]
